FAERS Safety Report 8080229-4 (Version None)
Quarter: 2012Q1

REPORT INFORMATION
  Report Type: 
  Country: None (occurrence: None)
  Receive Date: 20120127
  Receipt Date: 20110223
  Transmission Date: 20120608
  Serious: No
  Sender: FDA-Public Use
  Company Number: US-ABBOTT-11P-163-0707703-00

PATIENT
  Sex: Male
  Weight: 82.628 kg

DRUGS (5)
  1. TENORMIN [Concomitant]
     Indication: HEART RATE INCREASED
  2. LISINOPRIL [Concomitant]
     Indication: HYPERTENSION
  3. TRICOR [Concomitant]
     Indication: BLOOD TRIGLYCERIDES INCREASED
  4. PREDNISONE TAB [Concomitant]
     Indication: RHEUMATOID ARTHRITIS
  5. HUMIRA [Suspect]
     Indication: RHEUMATOID ARTHRITIS
     Dates: start: 20101201, end: 20110201

REACTIONS (1)
  - LOWER RESPIRATORY TRACT INFECTION [None]
